FAERS Safety Report 4572562-5 (Version None)
Quarter: 2005Q1

REPORT INFORMATION
  Report Type: 
  Country: None (occurrence: None)
  Receive Date: 20050208
  Receipt Date: 20050131
  Transmission Date: 20050727
  Serious: Yes (Death, Hospitalization)
  Sender: FDA-Public Use
  Company Number: FR-JNJFOC-20050200417

PATIENT
  Age: 57 Year
  Sex: Female

DRUGS (3)
  1. INFLIXIMAB [Suspect]
     Indication: RHEUMATOID ARTHRITIS
     Route: 042
  2. METHOTREXATE [Concomitant]
  3. PREDNISOLONE [Concomitant]

REACTIONS (4)
  - ARTHRITIS BACTERIAL [None]
  - ERYSIPELAS [None]
  - MYOCARDIAL INFARCTION [None]
  - STAPHYLOCOCCAL SEPSIS [None]
